FAERS Safety Report 20154924 (Version 2)
Quarter: 2021Q4

REPORT INFORMATION
  Report Type: Spontaneous
  Country: US (occurrence: US)
  Receive Date: 20211207
  Receipt Date: 20211222
  Transmission Date: 20220304
  Serious: No
  Sender: FDA-Public Use
  Company Number: US-NOVARTISTESTPH-NVSC2021US279199

PATIENT
  Sex: Male

DRUGS (1)
  1. LAMISIL [Suspect]
     Active Substance: TERBINAFINE HYDROCHLORIDE
     Indication: Product used for unknown indication
     Dosage: 250 MG
     Route: 065
     Dates: start: 20210209, end: 20210222

REACTIONS (3)
  - Fatigue [Unknown]
  - Nausea [Unknown]
  - Dizziness [Unknown]
